FAERS Safety Report 26149429 (Version 1)
Quarter: 2025Q4

REPORT INFORMATION
  Report Type: Report from Study
  Country: CN (occurrence: CN)
  Receive Date: 20251212
  Receipt Date: 20251212
  Transmission Date: 20260118
  Serious: Yes (Other)
  Sender: ROCHE
  Company Number: CN-ROCHE-10000346808

PATIENT
  Age: 59 Year
  Sex: Female
  Weight: 63 kg

DRUGS (39)
  1. POLATUZUMAB VEDOTIN [Suspect]
     Active Substance: POLATUZUMAB VEDOTIN
     Indication: Diffuse large B-cell lymphoma
     Dosage: MOST RECENT DOSE: 26-APR-2025
     Route: 041
     Dates: start: 20241204, end: 20241204
  2. POLATUZUMAB VEDOTIN [Suspect]
     Active Substance: POLATUZUMAB VEDOTIN
     Dosage: MOST RECENT DOSE: 26-APR-2025
     Route: 041
     Dates: start: 20250316, end: 20250316
  3. RITUXIMAB [Suspect]
     Active Substance: RITUXIMAB
     Indication: Diffuse large B-cell lymphoma
     Dosage: MOST RECENT DOSE: 26-APR-2025
     Route: 041
     Dates: start: 20241204, end: 20241204
  4. RITUXIMAB [Suspect]
     Active Substance: RITUXIMAB
     Dosage: MOST RECENT DOSE: 26-APR-2025
     Route: 041
     Dates: start: 20250315, end: 20250315
  5. CYCLOPHOSPHAMIDE [Suspect]
     Active Substance: CYCLOPHOSPHAMIDE
     Indication: Diffuse large B-cell lymphoma
     Route: 041
     Dates: start: 20241205, end: 20241205
  6. PREDNISONE [Suspect]
     Active Substance: PREDNISONE
     Indication: Diffuse large B-cell lymphoma
     Route: 048
     Dates: start: 20241205, end: 20241209
  7. CYTARABINE [Suspect]
     Active Substance: CYTARABINE
     Indication: Diffuse large B-cell lymphoma
     Route: 041
     Dates: start: 20250317, end: 20250317
  8. CYTARABINE [Suspect]
     Active Substance: CYTARABINE
     Route: 041
  9. DEXAMETHASONE [Suspect]
     Active Substance: DEXAMETHASONE
     Indication: Diffuse large B-cell lymphoma
     Route: 041
     Dates: start: 20250316, end: 20250319
  10. DEXAMETHASONE [Suspect]
     Active Substance: DEXAMETHASONE
     Route: 041
  11. OXALIPLATIN [Suspect]
     Active Substance: OXALIPLATIN
     Indication: Diffuse large B-cell lymphoma
     Route: 041
     Dates: start: 20250316, end: 20250316
  12. OXALIPLATIN [Suspect]
     Active Substance: OXALIPLATIN
     Route: 041
  13. EPIRUBICIN [Suspect]
     Active Substance: EPIRUBICIN
     Indication: Diffuse large B-cell lymphoma
     Route: 041
     Dates: start: 20241205, end: 20241205
  14. Magnesium Sulfate needle [Concomitant]
  15. Omeprazole tablets [Concomitant]
  16. ACYCLOVIR [Concomitant]
     Active Substance: ACYCLOVIR
  17. SULFAMETHOXAZOLE [Concomitant]
     Active Substance: SULFAMETHOXAZOLE
  18. Palonosetron Capsules [Concomitant]
  19. Dexamethasone pin [Concomitant]
  20. Lansoprazole needle [Concomitant]
  21. Efbemalenograstim alfa needle [Concomitant]
  22. sucralfate suspension gel [Concomitant]
  23. ZANUBRUTINIB tablets [Concomitant]
  24. CYTARABINE [Concomitant]
     Active Substance: CYTARABINE
  25. DIPHENHYDRAMINE [Concomitant]
     Active Substance: DIPHENHYDRAMINE
  26. ACETAMINOPHEN [Concomitant]
     Active Substance: ACETAMINOPHEN
  27. Mesna pin [Concomitant]
  28. Dexrazoxane injection [Concomitant]
  29. Magnesium Isoglycyrrhizinate Injection [Concomitant]
  30. potassium chloride Needle 10% Needles [Concomitant]
  31. Injectable Sodium Bicarbonate 5% needles [Concomitant]
  32. torasemide pin [Concomitant]
  33. LEUCOVORIN CALCIUM [Concomitant]
     Active Substance: LEUCOVORIN CALCIUM
  34. Lidocaine Pin [Concomitant]
  35. NEMONOXACIN Capsules [Concomitant]
     Route: 048
     Dates: start: 20250418, end: 202505
  36. 20 % human blood albumin needle [Concomitant]
  37. CALCIUM GLUCONATE [Concomitant]
     Active Substance: CALCIUM GLUCONATE
  38. Ganciclovir Capsule [Concomitant]
  39. Potassium citrate potassium supplement solution [Concomitant]

REACTIONS (1)
  - Pneumonia [Recovered/Resolved]

NARRATIVE: CASE EVENT DATE: 20250416
